FAERS Safety Report 7316365-7 (Version None)
Quarter: 2011Q1

REPORT INFORMATION
  Report Type: 
  Country: None (occurrence: None)
  Receive Date: 20110225
  Receipt Date: 20110221
  Transmission Date: 20110831
  Serious: Yes (Other)
  Sender: FDA-Public Use
  Company Number: AU-GILEAD-2011-0035490

PATIENT
  Sex: Male
  Weight: 88.3 kg

DRUGS (3)
  1. AMBRISENTAN [Suspect]
     Indication: IDIOPATHIC PULMONARY FIBROSIS
  2. AMBRISENTAN [Suspect]
     Indication: PULMONARY HYPERTENSION
     Route: 048
     Dates: start: 20100608, end: 20110109
  3. OXYGEN [Concomitant]

REACTIONS (1)
  - ELECTROCARDIOGRAM T WAVE INVERSION [None]
